FAERS Safety Report 15210024 (Version 3)
Quarter: 2018Q4

REPORT INFORMATION
  Report Type: Report from Study
  Country: US (occurrence: US)
  Receive Date: 20180727
  Receipt Date: 20181004
  Transmission Date: 20190204
  Serious: Yes (Hospitalization)
  Sender: FDA-Public Use
  Company Number: US-ACTELION-A-NJ2018-167427

PATIENT
  Age: 66 Year
  Sex: Female
  Weight: 65.76 kg

DRUGS (8)
  1. VELETRI [Suspect]
     Active Substance: EPOPROSTENOL
     Indication: PULMONARY ARTERIAL HYPERTENSION
     Dosage: 7 NG/KG, PER MIN
     Route: 042
  2. VELETRI [Suspect]
     Active Substance: EPOPROSTENOL
     Dosage: 18 NG/KG, PER MIN
     Route: 042
  3. SILDENAFIL CITRATE. [Concomitant]
     Active Substance: SILDENAFIL CITRATE
  4. VELETRI [Suspect]
     Active Substance: EPOPROSTENOL
     Dosage: 10 NG/KG, PER MIN
     Route: 042
  5. VELETRI [Suspect]
     Active Substance: EPOPROSTENOL
     Dosage: 14 NG/KG, PER MIN
     Route: 042
  6. ELIQUIS [Concomitant]
     Active Substance: APIXABAN
  7. LETAIRIS [Concomitant]
     Active Substance: AMBRISENTAN
  8. VELETRI [Suspect]
     Active Substance: EPOPROSTENOL
     Dosage: 5 NG/KG, PER MIN
     Route: 042

REACTIONS (20)
  - Transfusion [Unknown]
  - Nausea [Unknown]
  - Feeling abnormal [Unknown]
  - Chest discomfort [Unknown]
  - Dyspnoea [Unknown]
  - Catheter site erythema [Unknown]
  - Catheter site scab [Unknown]
  - Dyspnoea exertional [Unknown]
  - Fluid retention [Unknown]
  - Fall [Unknown]
  - Anaemia [Unknown]
  - Blood potassium decreased [Unknown]
  - Catheter site rash [Unknown]
  - Hypoxia [Unknown]
  - Respiratory distress [Unknown]
  - Haemoglobin decreased [Not Recovered/Not Resolved]
  - Catheter site pruritus [Unknown]
  - Headache [Unknown]
  - Diarrhoea [Unknown]
  - Muscular weakness [Unknown]

NARRATIVE: CASE EVENT DATE: 20180215
